FAERS Safety Report 10680854 (Version 1)
Quarter: 2014Q4

REPORT INFORMATION
  Report Type: Spontaneous
  Country: US (occurrence: US)
  Receive Date: 20141229
  Receipt Date: 20141229
  Transmission Date: 20150529
  Serious: No
  Sender: FDA-Public Use
  Company Number: US-ASTRAZENECA-2014SE81338

PATIENT
  Age: 75 Year
  Sex: Male

DRUGS (9)
  1. DAKLINZA [Suspect]
     Active Substance: DACLATASVIR DIHYDROCHLORIDE
     Indication: HEPATITIS C VIRUS TEST
     Route: 048
     Dates: start: 20140908, end: 20140929
  2. ASPIRIN. [Concomitant]
     Active Substance: ASPIRIN
  3. SUNVEPRA [Suspect]
     Active Substance: ASUNAPREVIR
     Indication: HEPATITIS C VIRUS TEST
     Route: 048
     Dates: start: 20140908, end: 20140929
  4. TAKEPRON [Concomitant]
     Active Substance: LANSOPRAZOLE
  5. CRESTOR [Suspect]
     Active Substance: ROSUVASTATIN CALCIUM
     Route: 048
  6. SALMOTEROL XINAFOATE + FLUTICASONE PROP [Concomitant]
  7. NU-LOTAN [Concomitant]
     Active Substance: LOSARTAN POTASSIUM
  8. SINGULAIR [Concomitant]
     Active Substance: MONTELUKAST SODIUM
  9. JANUVIA [Concomitant]
     Active Substance: SITAGLIPTIN PHOSPHATE

REACTIONS (1)
  - Renal disorder [Not Recovered/Not Resolved]

NARRATIVE: CASE EVENT DATE: 20140929
